FAERS Safety Report 6286465-1 (Version None)
Quarter: 2009Q3

REPORT INFORMATION
  Report Type: 
  Country: None (occurrence: None)
  Receive Date: 20090728
  Receipt Date: 20090717
  Transmission Date: 20100115
  Serious: Yes (Other)
  Sender: FDA-Public Use
  Company Number: B0584659A

PATIENT
  Sex: Female

DRUGS (2)
  1. WELLBUTRIN SR [Suspect]
     Indication: DEPRESSION
     Dosage: 150MG TWICE PER DAY
     Route: 048
     Dates: start: 20090101
  2. UNKNOWN DRUG [Concomitant]
     Indication: INSOMNIA
     Dosage: 2G PER DAY
     Dates: start: 20090127, end: 20090403

REACTIONS (5)
  - CONSTRICTED AFFECT [None]
  - DYSARTHRIA [None]
  - MASKED FACIES [None]
  - PARKINSONISM [None]
  - POSTURE ABNORMAL [None]
